FAERS Safety Report 18679193 (Version 2)
Quarter: 2021Q2

REPORT INFORMATION
  Report Type: Report from Study
  Country: US (occurrence: US)
  Receive Date: 20201230
  Receipt Date: 20210412
  Transmission Date: 20210717
  Serious: No
  Sender: FDA-Public Use
  Company Number: NVSC2020US339605

PATIENT
  Sex: Male

DRUGS (1)
  1. GLEEVEC [Suspect]
     Active Substance: IMATINIB MESYLATE
     Indication: GASTROINTESTINAL STROMAL TUMOUR
     Dosage: 400 MG, QD
     Route: 048

REACTIONS (7)
  - Taste disorder [Unknown]
  - Insomnia [Unknown]
  - Dry skin [Unknown]
  - Nausea [Unknown]
  - Peripheral swelling [Unknown]
  - Alopecia [Unknown]
  - Rash [Unknown]
